FAERS Safety Report 19415823 (Version 1)
Quarter: 2021Q2

REPORT INFORMATION
  Report Type: Spontaneous
  Country: US (occurrence: US)
  Receive Date: 20210614
  Receipt Date: 20210614
  Transmission Date: 20210717
  Serious: Yes (Hospitalization)
  Sender: FDA-Public Use
  Company Number: US-CATALYST PHARMACEUTICALS, INC-2021CAT00247

PATIENT
  Age: 61 Year
  Sex: Female
  Weight: 71.67 kg

DRUGS (19)
  1. IRON [Concomitant]
     Active Substance: IRON
  2. PREDNISONE. [Concomitant]
     Active Substance: PREDNISONE
  3. TYLENOL [Concomitant]
     Active Substance: ACETAMINOPHEN
  4. GUAIFENESIN ER [Concomitant]
     Active Substance: GUAIFENESIN
  5. ATENOLOL. [Concomitant]
     Active Substance: ATENOLOL
  6. MAGNESIUM [Concomitant]
     Active Substance: MAGNESIUM
  7. MELATONIN [Concomitant]
     Active Substance: MELATONIN
  8. XYZAL [Concomitant]
     Active Substance: LEVOCETIRIZINE DIHYDROCHLORIDE
  9. LOVAZA [Concomitant]
     Active Substance: OMEGA-3-ACID ETHYL ESTERS
  10. MYRBETRIQ [Concomitant]
     Active Substance: MIRABEGRON
  11. NEXIUM [Concomitant]
     Active Substance: ESOMEPRAZOLE MAGNESIUM
  12. DYMISTA [Concomitant]
     Active Substance: AZELASTINE HYDROCHLORIDE\FLUTICASONE PROPIONATE
  13. CALTRATE WITH D [Concomitant]
  14. LISINOPRIL. [Concomitant]
     Active Substance: LISINOPRIL
  15. GAMMAGARD [Suspect]
     Active Substance: HUMAN IMMUNOGLOBULIN G
     Dosage: UNK SPREAD OVER 3 DAYS
     Route: 042
     Dates: end: 2021
  16. CRESTOR [Concomitant]
     Active Substance: ROSUVASTATIN CALCIUM
  17. FIRDAPSE [Suspect]
     Active Substance: AMIFAMPRIDINE PHOSPHATE
     Indication: MYASTHENIC SYNDROME
     Dosage: 20 MG, 3X/DAY
     Dates: start: 20200717
  18. GAMMAGARD [Suspect]
     Active Substance: HUMAN IMMUNOGLOBULIN G
     Dosage: LOWER RATE OF INFUSION SPREAD OVER 4 DAYS
     Route: 042
     Dates: start: 2021
  19. BABY ASPIRIN [Concomitant]
     Active Substance: ASPIRIN

REACTIONS (4)
  - Blood sodium decreased [Recovered/Resolved]
  - Blood potassium increased [Recovered/Resolved]
  - Meningitis chemical [Recovered/Resolved]
  - Protein total increased [Recovered/Resolved]

NARRATIVE: CASE EVENT DATE: 202105
